FAERS Safety Report 6223949-6 (Version None)
Quarter: 2009Q2

REPORT INFORMATION
  Report Type: 
  Country: None (occurrence: None)
  Receive Date: 20090612
  Receipt Date: 20090304
  Transmission Date: 20091009
  Serious: No
  Sender: FDA-Public Use
  Company Number: US-ABBOTT-09P-163-0560976-00

PATIENT
  Sex: Male
  Weight: 98.972 kg

DRUGS (2)
  1. HUMIRA [Suspect]
     Indication: RHEUMATOID ARTHRITIS
     Route: 058
     Dates: start: 20070901
  2. LORTAB [Concomitant]
     Indication: PAIN
     Route: 048

REACTIONS (1)
  - DRUG ADMINISTRATION ERROR [None]
